FAERS Safety Report 13136508 (Version 3)
Quarter: 2017Q4

REPORT INFORMATION
  Report Type: Spontaneous
  Country: GB (occurrence: GB)
  Receive Date: 20170122
  Receipt Date: 20171018
  Transmission Date: 20180320
  Serious: Yes (Hospitalization, Other)
  Sender: FDA-Public Use
  Company Number: GB-CONCORDIA PHARMACEUTICALS INC.-E2B_00007978

PATIENT
  Age: 49 Year
  Sex: Male

DRUGS (9)
  1. PREDNISOLONE. [Suspect]
     Active Substance: PREDNISOLONE
     Dosage: STANDARD REDUCING COURSE; DECREASING DOSE BY 5 MG PER WEEK
     Route: 048
  2. METHYLPREDNISOLONE. [Suspect]
     Active Substance: METHYLPREDNISOLONE
     Indication: COLITIS ULCERATIVE
     Route: 042
  3. PREDNISOLONE. [Suspect]
     Active Substance: PREDNISOLONE
     Dosage: STANDARD REDUCING COURSE; DECREASING DOSE BY 5 MG PER WEEK
     Route: 048
  4. PREDNISOLONE. [Suspect]
     Active Substance: PREDNISOLONE
     Dosage: STANDARD REDUCING COURSE; DECREASING DOSE BY 5 MG PER WEEK
     Route: 048
  5. CICLOSPORIN [Concomitant]
     Active Substance: CYCLOSPORINE
  6. PREDNISOLONE. [Suspect]
     Active Substance: PREDNISOLONE
     Dosage: STANDARD REDUCING COURSE; DECREASING DOSE BY 5 MG PER WEEK
     Route: 048
  7. PREDNISOLONE. [Suspect]
     Active Substance: PREDNISOLONE
     Indication: COLITIS ULCERATIVE
     Dosage: STANDARD REDUCING COURSE; DECREASING DOSE BY 5 MG PER WEEK
     Route: 048
  8. PREDNISOLONE. [Suspect]
     Active Substance: PREDNISOLONE
     Dosage: STANDARD REDUCING COURSE; DECREASING DOSE BY 5 MG PER WEEK
     Route: 048
  9. CICLOSPORIN [Concomitant]
     Active Substance: CYCLOSPORINE
     Indication: COLITIS ULCERATIVE
     Dates: start: 20140812

REACTIONS (6)
  - Cushing^s syndrome [Unknown]
  - Muscular weakness [Recovered/Resolved]
  - Epidural lipomatosis [Recovering/Resolving]
  - Neuralgia [Unknown]
  - Sensory loss [Recovering/Resolving]
  - Spinal cord compression [Recovering/Resolving]
